FAERS Safety Report 15664684 (Version 2)
Quarter: 2019Q1

REPORT INFORMATION
  Report Type: Spontaneous
  Country: GB (occurrence: GB)
  Receive Date: 20181128
  Receipt Date: 20190216
  Transmission Date: 20190417
  Serious: Yes (Other)
  Sender: FDA-Public Use
  Company Number: GB-ACCORD-093981

PATIENT
  Age: 47 Year
  Sex: Female

DRUGS (9)
  1. THIAMINE. [Concomitant]
     Active Substance: THIAMINE
  2. LORAZEPAM. [Concomitant]
     Active Substance: LORAZEPAM
  3. SALBUTAMOL [Concomitant]
     Active Substance: ALBUTEROL
  4. RANITIDINE. [Concomitant]
     Active Substance: RANITIDINE
  5. FUROSEMIDE. [Suspect]
     Active Substance: FUROSEMIDE
     Indication: ACUTE PULMONARY OEDEMA
     Dosage: MULTIPLE 50MG STAT.
     Route: 042
     Dates: start: 20171110, end: 20171212
  6. CYANOCOBALAMIN. [Concomitant]
     Active Substance: CYANOCOBALAMIN
  7. MORPHINE [Concomitant]
     Active Substance: MORPHINE
  8. CREON [Concomitant]
     Active Substance: PANCRELIPASE AMYLASE\PANCRELIPASE LIPASE\PANCRELIPASE PROTEASE
  9. SPIRONOLACTONE. [Concomitant]
     Active Substance: SPIRONOLACTONE

REACTIONS (1)
  - Linear IgA disease [Recovered/Resolved]

NARRATIVE: CASE EVENT DATE: 20171124
